FAERS Safety Report 21530808 (Version 1)
Quarter: 2022Q4

REPORT INFORMATION
  Report Type: Spontaneous
  Country: US (occurrence: None)
  Receive Date: 20221028
  Receipt Date: 20221028
  Transmission Date: 20230112
  Serious: Yes (Hospitalization)
  Sender: FDA-Public Use
  Company Number: None

PATIENT
  Age: 62 Year
  Sex: Male
  Weight: 87.54 kg

DRUGS (1)
  1. OXALIPLATIN [Suspect]
     Active Substance: OXALIPLATIN
     Indication: Rectal cancer stage III
     Dosage: FREQUENCY : ONCE;?
     Route: 042
     Dates: start: 20220801, end: 20220801

REACTIONS (5)
  - Infusion related reaction [None]
  - Hypoaesthesia oral [None]
  - Anaphylactic reaction [None]
  - Dysphonia [None]
  - Rash macular [None]

NARRATIVE: CASE EVENT DATE: 20220801
